FAERS Safety Report 22779890 (Version 5)
Quarter: 2024Q1

REPORT INFORMATION
  Report Type: Spontaneous
  Country: US (occurrence: None)
  Receive Date: 20230803
  Receipt Date: 20240305
  Transmission Date: 20240410
  Serious: Yes (Death, Other)
  Sender: FDA-Public Use
  Company Number: US-ROCHE-3397332

PATIENT
  Sex: Female

DRUGS (2)
  1. TECENTRIQ [Suspect]
     Active Substance: ATEZOLIZUMAB
     Indication: Hepatocellular carcinoma
     Route: 065
     Dates: start: 20230130
  2. MVASI [Suspect]
     Active Substance: BEVACIZUMAB-AWWB
     Indication: Hepatocellular carcinoma
     Route: 065
     Dates: start: 20230130

REACTIONS (7)
  - Hepatocellular carcinoma [Fatal]
  - Hepatic cirrhosis [Fatal]
  - Hepatitis C [Fatal]
  - Condition aggravated [Unknown]
  - Haemorrhage [Unknown]
  - Hepatotoxicity [Unknown]
  - Hepatic function abnormal [Unknown]

NARRATIVE: CASE EVENT DATE: 20230303
